FAERS Safety Report 5244311-9 (Version None)
Quarter: 2007Q1

REPORT INFORMATION
  Report Type: 
  Country: None (occurrence: None)
  Receive Date: 20070222
  Receipt Date: 20070216
  Transmission Date: 20070707
  Serious: Yes (Life-Threatening, Hospitalization)
  Sender: FDA-Public Use
  Company Number: JP-BRACCO-BRO-011080

PATIENT
  Sex: Female

DRUGS (10)
  1. IOPAMIRON [Suspect]
     Indication: COMPUTERISED TOMOGRAM ABDOMEN
     Dosage: 3.3 ML/SEC
     Route: 042
     Dates: start: 20070105, end: 20070105
  2. IOPAMIRON [Suspect]
     Indication: BILE DUCT STONE
     Dosage: 3.3 ML/SEC
     Route: 042
     Dates: start: 20070105, end: 20070105
  3. ARTIST [Concomitant]
     Route: 050
     Dates: end: 20070105
  4. BUFFERIN [Concomitant]
     Route: 050
     Dates: end: 20070105
  5. NITROL [Concomitant]
     Route: 050
     Dates: end: 20070105
  6. CORINAE L [Concomitant]
     Route: 050
     Dates: end: 20070105
  7. PROCYLIN [Concomitant]
     Route: 050
     Dates: end: 20070105
  8. NIKORANMART [Concomitant]
     Route: 050
     Dates: end: 20070105
  9. MAGNESIUM OXIDE [Concomitant]
     Route: 050
     Dates: end: 20070105
  10. MUCODYNE [Concomitant]
     Route: 050
     Dates: end: 20070105

REACTIONS (7)
  - ANAPHYLACTIC SHOCK [None]
  - BLOOD PRESSURE DECREASED [None]
  - CHOKING [None]
  - CHOLECYSTITIS [None]
  - LOSS OF CONSCIOUSNESS [None]
  - OXYGEN SATURATION DECREASED [None]
  - SNEEZING [None]
